FAERS Safety Report 14726656 (Version 7)
Quarter: 2020Q4

REPORT INFORMATION
  Report Type: Other
  Country: US (occurrence: US)
  Receive Date: 20180406
  Receipt Date: 20201213
  Transmission Date: 20210113
  Serious: Yes (Other)
  Sender: FDA-Public Use
  Company Number: US-ROCHE-2100958

PATIENT
  Age: 37 Year
  Sex: Female
  Weight: 131.66 kg

DRUGS (20)
  1. OCREVUS [Suspect]
     Active Substance: OCRELIZUMAB
     Indication: PROGRESSIVE MULTIPLE SCLEROSIS
     Route: 042
  2. BENADRYL [Concomitant]
     Active Substance: DIPHENHYDRAMINE HYDROCHLORIDE
     Indication: PREMEDICATION
     Dosage: ONGOING: UNKNOWN?DURING 1ST INFUSION
     Route: 048
  3. BENADRYL [Concomitant]
     Active Substance: DIPHENHYDRAMINE HYDROCHLORIDE
     Dosage: DURING SECOND INFUSION
     Route: 042
  4. ONDANSETRON [Concomitant]
     Active Substance: ONDANSETRON
     Dosage: ONGOING YES,
  5. TIZANIDINE. [Concomitant]
     Active Substance: TIZANIDINE
     Indication: MUSCLE SPASMS
     Dosage: ONGOING : YES
  6. BACLOFEN. [Concomitant]
     Active Substance: BACLOFEN
     Indication: TREMOR
  7. RANITIDINE. [Concomitant]
     Active Substance: RANITIDINE
     Dosage: ONGOING YES, 1 TAB-2 TIMES A DAY
     Dates: start: 2018
  8. OXYCODONE [Concomitant]
     Active Substance: OXYCODONE
     Dosage: ONGOING : YES
  9. PREDNISONE. [Concomitant]
     Active Substance: PREDNISONE
     Indication: PREMEDICATION
     Dosage: ONGOING : NO
     Dates: start: 20200824
  10. VITAMIN B12 [Concomitant]
     Active Substance: CYANOCOBALAMIN
     Dosage: ONGOING : YES
  11. PROMETHAZINE [Concomitant]
     Active Substance: PROMETHAZINE HYDROCHLORIDE
     Dosage: ONGOING YES, 6.25MG PER/5ML, BEFORE NIGHT TIME MED
     Dates: start: 2018
  12. ZEMBRACE SYMTOUCH [Concomitant]
     Active Substance: SUMATRIPTAN SUCCINATE
     Dosage: ONGOING : YES
  13. VALTREX [Suspect]
     Active Substance: VALACYCLOVIR HYDROCHLORIDE
     Indication: HERPES ZOSTER
     Route: 065
     Dates: start: 201802
  14. TYLENOL [Concomitant]
     Active Substance: ACETAMINOPHEN
     Indication: PREMEDICATION
     Dosage: ONGOING: UNKNOWN
  15. TIZANIDINE. [Concomitant]
     Active Substance: TIZANIDINE
     Indication: TREMOR
  16. OCREVUS [Suspect]
     Active Substance: OCRELIZUMAB
     Indication: PRIMARY PROGRESSIVE MULTIPLE SCLEROSIS
     Route: 042
     Dates: start: 201802
  17. OCREVUS [Suspect]
     Active Substance: OCRELIZUMAB
     Route: 042
     Dates: start: 2019
  18. SOLU-MEDROL [Concomitant]
     Active Substance: METHYLPREDNISOLONE SODIUM SUCCINATE
     Indication: PREMEDICATION
     Dosage: ONGOING: UNKNOWN
  19. ESOMEPRAZOLE MAGNESIUM. [Concomitant]
     Active Substance: ESOMEPRAZOLE MAGNESIUM
     Dosage: ONGOING YES, 1 TAB-2 TIMES A DAY
  20. BACLOFEN. [Concomitant]
     Active Substance: BACLOFEN
     Indication: MUSCLE SPASMS
     Dosage: ONGOING : YES

REACTIONS (15)
  - Nausea [Unknown]
  - Nervous system disorder [Recovered/Resolved]
  - Tremor [Unknown]
  - Fall [Recovered/Resolved]
  - Multiple sclerosis relapse [Unknown]
  - Vomiting [Unknown]
  - Herpes zoster [Recovered/Resolved]
  - Heart rate decreased [Unknown]
  - Dysarthria [Recovered/Resolved]
  - Headache [Recovered/Resolved]
  - Migraine [Recovered/Resolved]
  - Cognitive disorder [Unknown]
  - Pruritus [Recovered/Resolved]
  - Oedema [Unknown]
  - Pain [Unknown]

NARRATIVE: CASE EVENT DATE: 201802
